FAERS Safety Report 21916722 (Version 2)
Quarter: 2023Q2

REPORT INFORMATION
  Report Type: Spontaneous
  Country: CA (occurrence: CA)
  Receive Date: 20230126
  Receipt Date: 20230504
  Transmission Date: 20230721
  Serious: Yes (Other)
  Sender: FDA-Public Use
  Company Number: CA-GLAXOSMITHKLINE-CACH2023AMR003151

PATIENT

DRUGS (7)
  1. ADVIL [Suspect]
     Active Substance: IBUPROFEN
     Indication: Product used for unknown indication
     Dosage: UNK
  2. IBRANCE [Suspect]
     Active Substance: PALBOCICLIB
     Indication: Breast cancer
     Dosage: UNK
     Dates: start: 20190523
  3. IBRANCE [Suspect]
     Active Substance: PALBOCICLIB
     Dosage: 75 MG (EVERY OTHER DAY, FOR 21 DAYS, THEN 7 DAYS OFF)
     Route: 048
     Dates: start: 20211026
  4. IBRANCE [Suspect]
     Active Substance: PALBOCICLIB
     Dosage: 75 MG, QD (FOR 21 DAYS, THEN 7 DAYS OFF)
     Route: 048
  5. IBRANCE [Suspect]
     Active Substance: PALBOCICLIB
     Dosage: 75 MG (PO DO FOR 21 DAYS THEN 7 DAYS OFF)
     Route: 048
  6. IBRANCE [Suspect]
     Active Substance: PALBOCICLIB
     Dosage: 75 MG TABLET FOR 21 DAYS THEN 7 DAYS OFF
     Route: 048
  7. GELATIN [Suspect]
     Active Substance: GELATIN
     Indication: Product used for unknown indication
     Dosage: UNK

REACTIONS (6)
  - Anaphylactic reaction [Unknown]
  - Drug hypersensitivity [Unknown]
  - Weight increased [Unknown]
  - Body surface area increased [Unknown]
  - Sneezing [Unknown]
  - Cough [Unknown]
